FAERS Safety Report 5528778-4 (Version None)
Quarter: 2007Q4

REPORT INFORMATION
  Report Type: 
  Country: None (occurrence: None)
  Receive Date: 20071129
  Receipt Date: 20071126
  Transmission Date: 20080405
  Serious: Yes (Other)
  Sender: FDA-Public Use
  Company Number: FR-WYE-G00675307

PATIENT
  Sex: Female

DRUGS (1)
  1. ADVIL [Suspect]
     Indication: PYREXIA
     Dosage: 1 DOSE FORM TWICE A DAY
     Route: 048
     Dates: start: 20070924, end: 20070926

REACTIONS (4)
  - ERYTHEMA MULTIFORME [None]
  - PRURITUS [None]
  - SKIN DEPIGMENTATION [None]
  - SKIN EXFOLIATION [None]
